FAERS Safety Report 7480753-9 (Version None)
Quarter: 2011Q2

REPORT INFORMATION
  Report Type: 
  Country: None (occurrence: None)
  Receive Date: 20110506
  Receipt Date: 20110421
  Transmission Date: 20111010
  Serious: Yes (Other)
  Sender: FDA-Public Use
  Company Number: 031875

PATIENT
  Age: 10 Year
  Sex: Female

DRUGS (5)
  1. PHENOBARBITAL TAB [Concomitant]
  2. CLONAZEPAM [Concomitant]
  3. LACOSAMIDE [Suspect]
     Indication: STATUS EPILEPTICUS
     Dosage: (50 MG, 3.3MG/KD/D INTRAVENOUS (NOT OTHERWISE SPECIFIED)), (UPTITRATION: 6MG/KG BODY WEIGHT), (FINAL
     Route: 042
  4. LEVETIRACETAM [Concomitant]
  5. DORMICUM /00036201/ [Concomitant]

REACTIONS (3)
  - EPILEPSY [None]
  - SEDATION [None]
  - OFF LABEL USE [None]
